FAERS Safety Report 19829808 (Version 1)
Quarter: 2021Q3

REPORT INFORMATION
  Report Type: Spontaneous
  Country: US (occurrence: US)
  Receive Date: 20210914
  Receipt Date: 20210914
  Transmission Date: 20211014
  Serious: No
  Sender: FDA-Public Use
  Company Number: None

PATIENT
  Age: 4 Month
  Sex: Male
  Weight: 6.5 kg

DRUGS (2)
  1. SYNAGIS [Suspect]
     Active Substance: PALIVIZUMAB
     Indication: CARDIAC FAILURE CONGESTIVE
     Dates: start: 20210914
  2. LASIX 20MG [Concomitant]

REACTIONS (2)
  - Faeces discoloured [None]
  - Faecal volume increased [None]

NARRATIVE: CASE EVENT DATE: 20210914
